FAERS Safety Report 8414614-5 (Version None)
Quarter: 2012Q2

REPORT INFORMATION
  Report Type: 
  Country: None (occurrence: None)
  Receive Date: 20120605
  Receipt Date: 20120530
  Transmission Date: 20120825
  Serious: Yes (Death, Other)
  Sender: FDA-Public Use
  Company Number: FR-ROCHE-1073822

PATIENT
  Age: 49 Year
  Sex: Female
  Weight: 37 kg

DRUGS (1)
  1. AVASTIN [Suspect]
     Indication: BREAST CANCER
     Dates: start: 20100621, end: 20110610

REACTIONS (2)
  - DISEASE PROGRESSION [None]
  - ILL-DEFINED DISORDER [None]
